FAERS Safety Report 20465871 (Version 1)
Quarter: 2022Q1

REPORT INFORMATION
  Report Type: Other
  Country: LB (occurrence: None)
  Receive Date: 20220212
  Receipt Date: 20220212
  Transmission Date: 20220423
  Serious: Yes (Death)
  Sender: FDA-Public Use
  Company Number: LB-ROCHE-2787245

PATIENT
  Sex: Male

DRUGS (1)
  1. TECENTRIQ [Suspect]
     Active Substance: ATEZOLIZUMAB
     Indication: Small cell lung cancer
     Route: 042
     Dates: start: 20210111, end: 20210517

REACTIONS (3)
  - Asymptomatic COVID-19 [Unknown]
  - Asymptomatic COVID-19 [Recovering/Resolving]
  - Death [Fatal]

NARRATIVE: CASE EVENT DATE: 20210308
